FAERS Safety Report 14380509 (Version 1)
Quarter: 2018Q1

REPORT INFORMATION
  Report Type: Spontaneous
  Country: SE (occurrence: SE)
  Receive Date: 20180112
  Receipt Date: 20180112
  Transmission Date: 20180509
  Serious: Yes (Disabling, Other)
  Sender: FDA-Public Use
  Company Number: SE-PFIZER INC-2018013267

PATIENT
  Age: 65 Year
  Sex: Female

DRUGS (14)
  1. TAVANIC [Concomitant]
     Active Substance: LEVOFLOXACIN
     Dosage: UNK
     Dates: start: 20170421
  2. KALCIPOS-D [Concomitant]
     Active Substance: CALCIUM CARBONATE\CHOLECALCIFEROL
     Dosage: UNK
  3. PYRIDOXINE [Concomitant]
     Active Substance: PYRIDOXINE
     Dosage: UNK
     Dates: start: 20170421
  4. LEVAXIN [Concomitant]
     Active Substance: LEVOTHYROXINE SODIUM
     Dosage: UNK
  5. NOVOMIX [Concomitant]
     Active Substance: INSULIN ASPART
     Dosage: UNK
  6. RIMACTAN /00146901/ [Concomitant]
     Active Substance: RIFAMPIN
     Dosage: UNK
     Dates: start: 20170421
  7. FOLIC ACID. [Concomitant]
     Active Substance: FOLIC ACID
     Dosage: UNK
  8. OMEPRAZOLE. [Concomitant]
     Active Substance: OMEPRAZOLE
     Dosage: UNK
  9. ZYVOXID [Suspect]
     Active Substance: LINEZOLID
     Indication: TUBERCULOMA OF CENTRAL NERVOUS SYSTEM
     Dosage: 600 MG, DAILY
     Route: 048
     Dates: start: 20170421, end: 20171210
  10. ISONIAZID. [Suspect]
     Active Substance: ISONIAZID
     Indication: TUBERCULOMA OF CENTRAL NERVOUS SYSTEM
     Dosage: UNK
     Route: 048
     Dates: start: 20170421, end: 20171212
  11. LEVETIRACETAM. [Concomitant]
     Active Substance: LEVETIRACETAM
     Dosage: UNK
     Dates: start: 20170421
  12. FURIX [Concomitant]
     Active Substance: FUROSEMIDE
     Dosage: UNK
  13. PREDNISOLONE. [Concomitant]
     Active Substance: PREDNISOLONE
     Dosage: UNK
     Dates: start: 20170421
  14. SPIRONOLACTONE. [Concomitant]
     Active Substance: SPIRONOLACTONE
     Dosage: UNK

REACTIONS (2)
  - Blood lactic acid increased [Not Recovered/Not Resolved]
  - Polyneuropathy [Not Recovered/Not Resolved]

NARRATIVE: CASE EVENT DATE: 20171210
